FAERS Safety Report 10466129 (Version 1)
Quarter: 2014Q3

REPORT INFORMATION
  Report Type: Spontaneous
  Country: US (occurrence: None)
  Receive Date: 20140919
  Receipt Date: 20140919
  Transmission Date: 20150326
  Serious: Yes (Hospitalization)
  Sender: FDA-Public Use
  Company Number: None

PATIENT
  Age: 29 Year
  Sex: Male
  Weight: 83.92 kg

DRUGS (2)
  1. LAMOTRIGINE. [Suspect]
     Active Substance: LAMOTRIGINE
     Indication: OBSESSIVE-COMPULSIVE DISORDER
     Dosage: 25MG.?2 PILLS ONCE DAILY?DAILY AT BEDTIME?BY MOUTH
     Route: 048
     Dates: start: 20140723, end: 20140822
  2. CLONAZEPAM. [Concomitant]
     Active Substance: CLONAZEPAM

REACTIONS (4)
  - Drug reaction with eosinophilia and systemic symptoms [None]
  - Nausea [None]
  - Pyrexia [None]
  - Abdominal pain upper [None]

NARRATIVE: CASE EVENT DATE: 20140815
